FAERS Safety Report 25110677 (Version 1)
Quarter: 2025Q1

REPORT INFORMATION
  Report Type: Report from Study
  Country: US (occurrence: US)
  Receive Date: 20250324
  Receipt Date: 20250324
  Transmission Date: 20250409
  Serious: Yes (Other)
  Sender: ABBVIE
  Company Number: US-ABBVIE-6189732

PATIENT
  Sex: Male

DRUGS (1)
  1. RINVOQ [Suspect]
     Active Substance: UPADACITINIB
     Indication: Dermatitis atopic
     Route: 048
     Dates: start: 20241216

REACTIONS (5)
  - Non-Hodgkin^s lymphoma [Unknown]
  - Skin exfoliation [Unknown]
  - Therapeutic product effect decreased [Unknown]
  - Dry skin [Unknown]
  - Muscle disorder [Unknown]
